FAERS Safety Report 15735559 (Version 1)
Quarter: 2018Q4

REPORT INFORMATION
  Report Type: Spontaneous
  Country: US (occurrence: US)
  Receive Date: 20181218
  Receipt Date: 20181218
  Transmission Date: 20190205
  Serious: Yes (Hospitalization)
  Sender: FDA-Public Use
  Company Number: None

PATIENT
  Age: 65 Year
  Sex: Male

DRUGS (7)
  1. OXYCOD/APAP TAB 5-325MG [Concomitant]
  2. ENBREL [Suspect]
     Active Substance: ETANERCEPT
     Indication: PSORIATIC ARTHROPATHY
     Dosage: ?          OTHER FREQUENCY:EVERY WEEK;?
     Route: 058
  3. ENBREL [Suspect]
     Active Substance: ETANERCEPT
     Indication: RHEUMATOID ARTHRITIS
     Dosage: ?          OTHER FREQUENCY:EVERY WEEK;?
     Route: 058
  4. METFORMIN TAB 500MG [Concomitant]
  5. ASPIRIN TAB 81MG EC [Concomitant]
  6. PRAVASTATIN TAB 20MG [Concomitant]
  7. CLOPIDOGREL TAB 75MG [Concomitant]

REACTIONS (2)
  - Therapy cessation [None]
  - Limb operation [None]

NARRATIVE: CASE EVENT DATE: 20181209
